FAERS Safety Report 25926888 (Version 1)
Quarter: 2025Q4

REPORT INFORMATION
  Report Type: Spontaneous
  Country: US (occurrence: None)
  Receive Date: 20251015
  Receipt Date: 20251015
  Transmission Date: 20260118
  Serious: No
  Sender: FDA-CTU
  Company Number: None

PATIENT
  Age: 78 Year
  Sex: Male
  Weight: 62.55 kg

DRUGS (7)
  1. XTANDI [Suspect]
     Active Substance: ENZALUTAMIDE
     Indication: Prostate cancer
     Dosage: FREQUENCY : DAILY;?
     Route: 048
     Dates: start: 20250703
  2. Pluvicto 1000 MBQ/ml Soln [Concomitant]
  3. Lupron Depot Kit 22.5 Mg (3 Month) [Concomitant]
  4. Zoledronic Acid IV soln 4 mg/5ml [Concomitant]
  5. Vitamin D3 25 mcg [Concomitant]
  6. Milk Thistle 140 mg Caps [Concomitant]
  7. Calcium-Magnesium-Zinc [Concomitant]

REACTIONS (2)
  - Renal pain [None]
  - Hepatic pain [None]

NARRATIVE: CASE EVENT DATE: 20251015
